FAERS Safety Report 13613567 (Version 1)
Quarter: 2017Q2

REPORT INFORMATION
  Report Type: Report from Study
  Country: None (occurrence: US)
  Receive Date: 20170605
  Receipt Date: 20170605
  Transmission Date: 20170830
  Serious: Yes (Other)
  Sender: FDA-Public Use
  Company Number: US-ABBVIE-17K-163-1937248-00

PATIENT
  Sex: Male

DRUGS (1)
  1. HUMIRA [Suspect]
     Active Substance: ADALIMUMAB
     Indication: RHEUMATOID ARTHRITIS
     Route: 058
     Dates: start: 20170317

REACTIONS (4)
  - Headache [Recovered/Resolved]
  - Musculoskeletal stiffness [Recovering/Resolving]
  - Articular calcification [Unknown]
  - Joint stiffness [Unknown]

NARRATIVE: CASE EVENT DATE: 2017
